FAERS Safety Report 4855714-6 (Version None)
Quarter: 2005Q4

REPORT INFORMATION
  Report Type: 
  Country: None (occurrence: None)
  Receive Date: 20051216
  Receipt Date: 20051013
  Transmission Date: 20060501
  Serious: Yes (Other)
  Sender: FDA-Public Use
  Company Number: US-ROCHE-421585

PATIENT

DRUGS (2)
  1. ACCUTANE [Suspect]
     Indication: DRUG USE FOR UNKNOWN INDICATION
     Dosage: DOSE WAS REPORTED AS HAVE INCREASED TO 70MG A DAY.
     Route: 048
  2. ACCUTANE [Suspect]
     Route: 048

REACTIONS (3)
  - CRANIAL NERVE DISORDER [None]
  - EYE MOVEMENT DISORDER [None]
  - MYALGIA [None]
